FAERS Safety Report 10146933 (Version 3)
Quarter: 2014Q2

REPORT INFORMATION
  Report Type: Spontaneous
  Country: US (occurrence: US)
  Receive Date: 20140501
  Receipt Date: 20140516
  Transmission Date: 20141212
  Serious: Yes (Other)
  Sender: FDA-Public Use
  Company Number: US-GLAXOSMITHKLINE-A1058272A

PATIENT
  Age: 54 Year
  Sex: Male

DRUGS (5)
  1. ADVAIR HFA [Suspect]
     Indication: ASTHMA
     Dosage: 1PUFF TWICE PER DAY
     Route: 055
     Dates: start: 2000
  2. VENTOLIN [Suspect]
     Indication: ASTHMA
     Dosage: 2PUFF AS REQUIRED
     Route: 055
     Dates: start: 2000
  3. ADVAIR HFA [Concomitant]
  4. BLOOD PRESSURE MEDICATION [Concomitant]
  5. PROSTATE MEDICATION [Concomitant]

REACTIONS (11)
  - Lung infection [Recovering/Resolving]
  - Asthma [Recovered/Resolved]
  - Muscle spasms [Recovered/Resolved]
  - Pain in extremity [Recovered/Resolved]
  - Nasopharyngitis [Recovering/Resolving]
  - Cough [Recovering/Resolving]
  - Productive cough [Recovering/Resolving]
  - Dyspnoea [Recovering/Resolving]
  - Lung disorder [Recovering/Resolving]
  - Restless legs syndrome [Recovering/Resolving]
  - Inhalation therapy [Unknown]
